FAERS Safety Report 9344055 (Version 5)
Quarter: 2013Q4

REPORT INFORMATION
  Report Type: Spontaneous
  Country: IT (occurrence: IT)
  Receive Date: 20130612
  Receipt Date: 20131220
  Transmission Date: 20140711
  Serious: Yes (Hospitalization)
  Sender: FDA-Public Use
  Company Number: IT-PFIZER INC-2013174949

PATIENT
  Age: 63 Year
  Sex: Female

DRUGS (11)
  1. ZAVEDOS [Suspect]
     Indication: ACUTE MYELOID LEUKAEMIA
     Dosage: 19.1 MG, DAILY
     Route: 042
     Dates: start: 20120727, end: 20120731
  2. CYTARABINE [Suspect]
     Indication: ACUTE MYELOID LEUKAEMIA
     Dosage: 159 MG, DAILY
     Route: 042
     Dates: start: 20120727, end: 20120802
  3. URBASON SOLUBILE [Concomitant]
     Dosage: 20 MG, UNK
     Route: 042
     Dates: start: 20120725, end: 20120802
  4. ZOFRAN [Concomitant]
     Indication: PROPHYLAXIS OF NAUSEA AND VOMITING
     Dosage: 3 DF, UNK
     Route: 042
     Dates: start: 20120727, end: 20120802
  5. ACICLOVIR [Concomitant]
     Indication: ANTIVIRAL PROPHYLAXIS
     Dosage: 1.6 G, UNK
     Route: 048
     Dates: start: 20120725, end: 20120728
  6. GADRAL [Concomitant]
     Dosage: 45 ML, UNK
     Route: 048
     Dates: start: 20120726, end: 20120731
  7. LASIX FOR INJECTION [Concomitant]
     Dosage: 10 MG, UNK
     Route: 042
     Dates: start: 20120730, end: 20120802
  8. LEVOXACIN [Concomitant]
     Indication: ANTIBIOTIC PROPHYLAXIS
     Dosage: 1 DF, UNK
     Route: 048
     Dates: start: 20120727, end: 20120806
  9. POSACONAZOLE [Concomitant]
     Indication: ANTIFUNGAL PROPHYLAXIS
     Dosage: 15 ML, UNK
     Route: 048
     Dates: start: 20120727, end: 20120815
  10. BIFRIL [Concomitant]
     Indication: HYPERTENSION
     Dosage: 3.75 MG, UNK
     Route: 048
     Dates: start: 20120727, end: 20120808
  11. ALLOPURINOL [Concomitant]
     Indication: PROPHYLAXIS
     Dosage: 300 MG, UNK
     Route: 048
     Dates: start: 20120726, end: 20120802

REACTIONS (6)
  - Pseudomonas infection [Recovered/Resolved]
  - Thrombocytopenia [Recovered/Resolved]
  - Abdominal pain upper [Recovered/Resolved]
  - Candida infection [Recovered/Resolved]
  - Pulmonary embolism [Recovered/Resolved]
  - Venous thrombosis limb [Recovered/Resolved]
